FAERS Safety Report 9227588 (Version 1)
Quarter: 2013Q2

REPORT INFORMATION
  Report Type: Spontaneous
  Country: MX (occurrence: MX)
  Receive Date: 20130412
  Receipt Date: 20130412
  Transmission Date: 20140414
  Serious: Yes (Death, Hospitalization, Other)
  Sender: FDA-Public Use
  Company Number: PHHY2011MX108064

PATIENT
  Age: 67 Year
  Sex: Male

DRUGS (2)
  1. GALVUS MET [Suspect]
     Indication: DIABETES MELLITUS
     Dosage: 2 TABLETS (850 MG METF AND 50 MG VILD) DAILY
  2. DIOVAN [Suspect]
     Dosage: UNK UKN, UNK
     Dates: start: 2010

REACTIONS (3)
  - Pneumonia [Fatal]
  - Sepsis [Fatal]
  - Renal disorder [Recovered/Resolved]
